FAERS Safety Report 19618898 (Version 1)
Quarter: 2021Q3

REPORT INFORMATION
  Report Type: Spontaneous
  Country: US (occurrence: US)
  Receive Date: 20210727
  Receipt Date: 20210727
  Transmission Date: 20211014
  Serious: No
  Sender: FDA-Public Use
  Company Number: US-ROCHE-2777597

PATIENT
  Age: 62 Year
  Sex: Female

DRUGS (2)
  1. XELODA [Suspect]
     Active Substance: CAPECITABINE
     Indication: BREAST CANCER
     Route: 048
     Dates: start: 202012
  2. XELODA [Suspect]
     Active Substance: CAPECITABINE
     Dosage: ONGOING: YES
     Route: 048
     Dates: start: 202009

REACTIONS (5)
  - Dizziness [Unknown]
  - Neuropathy peripheral [Unknown]
  - Pigmentation disorder [Unknown]
  - Constipation [Unknown]
  - Palmar-plantar erythrodysaesthesia syndrome [Unknown]

NARRATIVE: CASE EVENT DATE: 20210224
